FAERS Safety Report 4318093-9 (Version None)
Quarter: 2004Q1

REPORT INFORMATION
  Report Type: 
  Country: None (occurrence: None)
  Receive Date: 20040317
  Receipt Date: 20040310
  Transmission Date: 20041129
  Serious: Yes (Hospitalization)
  Sender: FDA-Public Use
  Company Number: WAES 0403USA01032

PATIENT
  Age: 83 Year
  Sex: Male

DRUGS (10)
  1. ZETIA [Suspect]
     Indication: HYPERCHOLESTEROLAEMIA
     Route: 048
  2. FLUDROCORTISONE [Concomitant]
  3. LASIX [Concomitant]
  4. HYDRODIURIL [Concomitant]
     Route: 048
  5. LEVOTHYROXINE SODIUM [Concomitant]
     Route: 048
  6. MEVACOR [Concomitant]
     Route: 048
  7. TOPROL-XL [Concomitant]
  8. PREDNISONE [Concomitant]
  9. SPIRONOLACTONE [Concomitant]
  10. COUMADIN [Concomitant]

REACTIONS (1)
  - INTERNATIONAL NORMALISED RATIO INCREASED [None]
